FAERS Safety Report 19190322 (Version 4)
Quarter: 2021Q3

REPORT INFORMATION
  Report Type: Spontaneous
  Country: JP (occurrence: JP)
  Receive Date: 20210428
  Receipt Date: 20210913
  Transmission Date: 20211014
  Serious: Yes (Death, Other)
  Sender: FDA-Public Use
  Company Number: JP-009507513-2104JPN000690J

PATIENT
  Age: 79 Year
  Sex: Male
  Weight: 50 kg

DRUGS (8)
  1. BAYASPIRIN [Concomitant]
     Active Substance: ASPIRIN
     Indication: CEREBRAL INFARCTION
     Dosage: 100 MILLIGRAM, QD
     Route: 048
  2. OLMETEC [Concomitant]
     Active Substance: OLMESARTAN MEDOXOMIL
     Indication: HYPERTENSION
     Dosage: 20 MILLIGRAM, QD
     Route: 048
  3. FEXOFENADINE HYDROCHLORIDE. [Concomitant]
     Active Substance: FEXOFENADINE HYDROCHLORIDE
     Indication: TOXIC SKIN ERUPTION
     Dosage: 60 MILLIGRAM, BID
     Route: 048
     Dates: start: 20201030
  4. PREDONINE [Concomitant]
     Active Substance: PREDNISOLONE
     Indication: TOXIC SKIN ERUPTION
     Dosage: 10 MILLIGRAM, QD
     Route: 048
     Dates: start: 20201030, end: 20210402
  5. UBRETID [Concomitant]
     Active Substance: DISTIGMINE BROMIDE
     Indication: BENIGN PROSTATIC HYPERPLASIA
     Dosage: 5 MILLIGRAM, QD
     Route: 048
  6. MEDITRANS [Concomitant]
     Indication: ANGINA PECTORIS
     Dosage: 27 MILLIGRAM, QD
  7. STROMECTOL [Suspect]
     Active Substance: IVERMECTIN
     Indication: ACARODERMATITIS
     Dosage: 9 MILLIGRAM, QD
     Route: 048
     Dates: start: 20210331, end: 20210331
  8. METGLUCO [Concomitant]
     Active Substance: METFORMIN HYDROCHLORIDE
     Indication: TYPE 2 DIABETES MELLITUS
     Dosage: 500 MILLIGRAM, QD
     Route: 048

REACTIONS (5)
  - Cardiac failure [Fatal]
  - Gastrointestinal haemorrhage [Fatal]
  - Hypokalaemia [Unknown]
  - Anaemia [Fatal]
  - Pneumonia [Recovering/Resolving]

NARRATIVE: CASE EVENT DATE: 2021
